FAERS Safety Report 13159915 (Version 2)
Quarter: 2017Q2

REPORT INFORMATION
  Report Type: Spontaneous
  Country: US (occurrence: US)
  Receive Date: 20170127
  Receipt Date: 20170413
  Transmission Date: 20170830
  Serious: No
  Sender: FDA-Public Use
  Company Number: US-TEVA-732388USA

PATIENT
  Sex: Female

DRUGS (2)
  1. ACTIQ [Suspect]
     Active Substance: FENTANYL CITRATE
     Indication: PAIN
     Dosage: 1600 MICROGRAM DAILY;
     Route: 048
     Dates: start: 2008
  2. ACTIQ [Suspect]
     Active Substance: FENTANYL CITRATE
     Route: 048

REACTIONS (8)
  - Dysgeusia [Unknown]
  - Product quality issue [Unknown]
  - Product formulation issue [Unknown]
  - Product taste abnormal [Unknown]
  - Pain [Unknown]
  - Drug effect variable [Unknown]
  - Drug ineffective [Unknown]
  - Product blister packaging issue [Unknown]
